FAERS Safety Report 21451132 (Version 1)
Quarter: 2022Q4

REPORT INFORMATION
  Report Type: Report from Study
  Country: IN (occurrence: IN)
  Receive Date: 20221013
  Receipt Date: 20221013
  Transmission Date: 20230112
  Serious: Yes (Death, Hospitalization)
  Sender: FDA-Public Use
  Company Number: IN-NOVARTISPH-PHHY2019IN151925

PATIENT
  Age: 58 Year
  Sex: Female

DRUGS (3)
  1. SACUBITRIL\VALSARTAN [Suspect]
     Active Substance: SACUBITRIL\VALSARTAN
     Indication: Cardiac failure congestive
     Dosage: 200 MG, BID
     Route: 065
     Dates: start: 20190603
  2. SACUBITRIL\VALSARTAN [Suspect]
     Active Substance: SACUBITRIL\VALSARTAN
     Dosage: 200 MG (97MG SACUBITRIL /103MGVALSARTAN), BID (HALF TWICE DAILY)
     Route: 065
     Dates: start: 20190604
  3. SACUBITRIL\VALSARTAN [Suspect]
     Active Substance: SACUBITRIL\VALSARTAN
     Dosage: 200 MG, BID
     Route: 065
     Dates: start: 20191211

REACTIONS (4)
  - Cardiac failure [Fatal]
  - Generalised oedema [Unknown]
  - Wrong technique in product usage process [Unknown]
  - Prescribed underdose [Unknown]

NARRATIVE: CASE EVENT DATE: 20190604
